FAERS Safety Report 21052464 (Version 1)
Quarter: 2022Q3

REPORT INFORMATION
  Report Type: Spontaneous
  Country: DE (occurrence: DE)
  Receive Date: 20220707
  Receipt Date: 20220707
  Transmission Date: 20221026
  Serious: Yes (Hospitalization, Other)
  Sender: FDA-Public Use
  Company Number: DE-NOVPHSZ-PHHY2019DE005383

PATIENT
  Sex: Female
  Weight: 78 kg

DRUGS (62)
  1. MOXIFLOXACIN [Suspect]
     Active Substance: MOXIFLOXACIN
     Indication: Infection
     Dosage: 400 MILLIGRAM,400 MG FILM COATED TABLET
     Route: 065
     Dates: start: 201508, end: 201508
  2. VALSARTAN [Suspect]
     Active Substance: VALSARTAN
     Indication: Essential hypertension
     Dosage: 80 MILLIGRAM, QD,80 MG, QD
     Route: 065
     Dates: start: 201412, end: 20180707
  3. VALSARTAN [Suspect]
     Active Substance: VALSARTAN
     Dosage: 80 MG
     Route: 065
     Dates: start: 20180412, end: 201807
  4. VALSARTAN [Suspect]
     Active Substance: VALSARTAN
     Dosage: 80 MILLIGRAM, AM,80 MG, QD (1 TABLET PER DAY) (MORNING)
     Route: 065
     Dates: start: 201601, end: 201807
  5. VALSARTAN [Suspect]
     Active Substance: VALSARTAN
     Dosage: 1 DF (80 MG, PER DAY IN THE MORNING)
     Route: 065
     Dates: start: 20140926, end: 201806
  6. NALOXONE HYDROCHLORIDE\OXYCODONE HYDROCHLORIDE [Concomitant]
     Active Substance: NALOXONE HYDROCHLORIDE\OXYCODONE HYDROCHLORIDE
     Indication: Product used for unknown indication
     Dosage: 10 MG / 10/5 MG, ONCE IN THE MORNING, ONCE IN THE EVENING (8 AM, 5/8 PM)
     Route: 065
     Dates: start: 20180526, end: 20180528
  7. IODINE [Concomitant]
     Active Substance: IODINE
     Indication: Product used for unknown indication
     Dosage: 0.2 MG, QD (200 HEXAL) IN THE MORNING
     Route: 065
  8. HYDROCHLOROTHIAZIDE\VALSARTAN [Concomitant]
     Active Substance: HYDROCHLOROTHIAZIDE\VALSARTAN
     Indication: Product used for unknown indication
     Dosage: UNK
     Route: 065
  9. IODINE [Concomitant]
     Active Substance: IODINE
     Indication: Thyroid therapy
     Dosage: 200 UG, QD,AM 1X, PER DAY (MORNING, 1-0-0-0)
     Route: 065
     Dates: start: 20180502
  10. IODINE [Concomitant]
     Active Substance: IODINE
     Dosage: 200 MICROGRAM, QD,200 UG, HALF A TABLET 200 ?G
     Route: 065
  11. IODINE [Concomitant]
     Active Substance: IODINE
     Dosage: 200 MICROGRAM, QD,200 UG, QD, 1X, PER DAY (MORNING, 1-0-0-0, 8 AM)
     Route: 065
     Dates: start: 20180523, end: 20180524
  12. IODINE [Concomitant]
     Active Substance: IODINE
     Dosage: 200 MICROGRAM,200 UG
     Route: 065
  13. PANTOZOL [Concomitant]
     Active Substance: PANTOPRAZOLE SODIUM
     Indication: Product used for unknown indication
     Dosage: 20 MILLIGRAM, AM,20 MG, QD, 1X DAILY (MORNING)
     Route: 065
  14. PANTOZOL [Concomitant]
     Active Substance: PANTOPRAZOLE SODIUM
     Dosage: UNK
     Route: 065
  15. FONDAPARINUX [Concomitant]
     Active Substance: FONDAPARINUX
     Indication: Thrombosis prophylaxis
     Dosage: 2.5 MILLIGRAM, PM,2.5 MILLIGRAM,2.5 MG, IN THE EVENING, EVERY DAY
     Route: 065
  16. Magnesium chloride;Potassium;Potassium phosphate dibasic;Sodium acetat [Concomitant]
     Indication: Product used for unknown indication
     Dosage: UNK UNK, AM,UNK, 1X, PER DAY (MORNING)
     Route: 065
  17. Magnesium chloride;Potassium;Potassium phosphate dibasic;Sodium acetat [Concomitant]
     Dosage: 1 DOSAGE FORM, QD,1 DF, QD
     Route: 065
  18. SODIUM CHLORIDE [Concomitant]
     Active Substance: SODIUM CHLORIDE
     Indication: Product used for unknown indication
     Dosage: UNK
     Route: 065
     Dates: start: 201805
  19. SALINE [Concomitant]
     Active Substance: SODIUM CHLORIDE
     Indication: Product used for unknown indication
     Dosage: 100 MILLILITER,100 ML
     Route: 065
     Dates: start: 20180528
  20. LIDOCAINE [Concomitant]
     Active Substance: LIDOCAINE
     Indication: Analgesic therapy
     Dosage: ACCORDING TO SCHEME
     Route: 065
  21. CALCIUM CHLORIDE\POTASSIUM CHLORIDE\SODIUM ACETATE [Concomitant]
     Active Substance: CALCIUM CHLORIDE\POTASSIUM CHLORIDE\SODIUM ACETATE
     Indication: Product used for unknown indication
     Dosage: 1000 MILLILITER,1000 ML
     Route: 065
     Dates: start: 20180525, end: 20180531
  22. METAMIZOLE [Concomitant]
     Active Substance: METAMIZOLE
     Indication: Analgesic therapy
     Dosage: 1 MILLIGRAM,1 MG, 4X
     Route: 065
  23. KALIUM + MAGNESIUM [Concomitant]
     Indication: Product used for unknown indication
     Dosage: UNK (1 IN THE MORNING, 2 AT NOON)
     Route: 065
  24. POLYETHYLENE GLYCOL 3350\POTASSIUM CHLORIDE\SODIUM BICARBONATE\SODIUM [Concomitant]
     Active Substance: POLYETHYLENE GLYCOL 3350\POTASSIUM CHLORIDE\SODIUM BICARBONATE\SODIUM CHLORIDE
     Indication: Product used for unknown indication
     Dosage: 1 DOSAGE FORM, QD
     Route: 065
  25. PIRITRAMIDE [Concomitant]
     Active Substance: PIRITRAMIDE
     Indication: Product used for unknown indication
     Dosage: UNK
     Route: 065
     Dates: start: 201805
  26. MAGNESIUM CARBONATE;POTASSIUM [Concomitant]
     Indication: Product used for unknown indication
     Dosage: UNK UNK, AM,UNK (1 PER DAY, MORMING)
     Route: 065
  27. SULTANOL [Concomitant]
     Active Substance: ALBUTEROL SULFATE
     Indication: Pneumonia
     Dosage: UNK
     Route: 065
  28. ACETAMINOPHEN [Concomitant]
     Active Substance: ACETAMINOPHEN
     Indication: Product used for unknown indication
     Dosage: 500 MILLIGRAM,500 MG, AS NEEDED
     Route: 065
     Dates: start: 20180602
  29. GRANISETRON HYDROCHLORIDE [Concomitant]
     Active Substance: GRANISETRON HYDROCHLORIDE
     Indication: Product used for unknown indication
     Dosage: 1 MILLIGRAM,1 MG, 1 ML,
     Route: 065
     Dates: start: 20180528
  30. MAGNESIUM [Concomitant]
     Active Substance: MAGNESIUM
     Indication: Product used for unknown indication
     Dosage: 1 DOSAGE FORM, QD
     Route: 065
  31. CHOLECALCIFEROL [Concomitant]
     Active Substance: CHOLECALCIFEROL
     Indication: Product used for unknown indication
     Dosage: 20 INTERNATIONAL UNIT, QW,20 IU, PER WEEK
     Route: 065
  32. CHOLECALCIFEROL [Concomitant]
     Active Substance: CHOLECALCIFEROL
     Dosage: 20 INTERNATIONAL UNIT, QD,20.000 IU, Q2W
     Route: 065
     Dates: start: 20200628
  33. CHOLECALCIFEROL [Concomitant]
     Active Substance: CHOLECALCIFEROL
     Dosage: 20 INTERNATIONAL UNIT,AM,20 IU, ONCE DAILY IN THE MORNING
     Route: 065
     Dates: start: 20180502
  34. CHOLECALCIFEROL [Concomitant]
     Active Substance: CHOLECALCIFEROL
     Dosage: 20 INTERNATIONAL UNIT, AM,20 IU, ONCE DAILY IN THE MORNING
     Route: 065
     Dates: start: 20180523, end: 20180531
  35. LATANOPROST [Concomitant]
     Active Substance: LATANOPROST
     Indication: Glaucoma
     Dosage: UNK UNK, PM,(0.01 MG/0.2 ML) IN THE EVENING, EVERY EYE
     Route: 065
  36. LATANOPROST [Concomitant]
     Active Substance: LATANOPROST
     Dosage: 1 GTT DROPS, AM,1 DRP, IN THE MORNINGS, LEFT AND REIGHT
     Route: 065
  37. LATANOPROST [Concomitant]
     Active Substance: LATANOPROST
     Dosage: 1 GTT DROPS, PM,1 DRP, 1X 1 DROP, IN THE EVENINGS, PER EYE
     Route: 065
  38. LATANOPROST [Concomitant]
     Active Substance: LATANOPROST
     Dosage: UNK UNK, PM,1 DRP, 1X 1 DROP, IN THE EVENINGS, PER EYE
     Route: 065
  39. HYDROMORPHONE [Concomitant]
     Active Substance: HYDROMORPHONE
     Indication: Product used for unknown indication
     Dosage: 1.3 MILLIGRAM,1.3 MG
     Route: 065
     Dates: start: 20180526
  40. HYDROMORPHONE [Concomitant]
     Active Substance: HYDROMORPHONE
     Dosage: 2.6 MILLIGRAM, QD,1.3 MG, BID
     Route: 065
  41. PANTOPRAZOLE SODIUM [Concomitant]
     Active Substance: PANTOPRAZOLE SODIUM
     Indication: Product used for unknown indication
     Dosage: 20 MILLIGRAM, AM,20 MG, QD (1 DAILY, MORNING)
     Route: 065
  42. PANTOPRAZOLE SODIUM [Concomitant]
     Active Substance: PANTOPRAZOLE SODIUM
     Dosage: 80 MILLIGRAM, QD,40 MG, BID
     Route: 065
  43. PANTOPRAZOLE SODIUM [Concomitant]
     Active Substance: PANTOPRAZOLE SODIUM
     Dosage: 40 MILLIGRAM, QD,40 MG BUNK
     Route: 065
  44. ATROVENT [Concomitant]
     Active Substance: IPRATROPIUM BROMIDE
     Indication: Pneumonia
     Dosage: UNK
     Route: 065
  45. BECLOMETHASONE DIPROPIONATE [Concomitant]
     Active Substance: BECLOMETHASONE DIPROPIONATE
     Indication: Asthma
     Dosage: UNK
     Route: 065
  46. HUMATIN [Concomitant]
     Active Substance: PAROMOMYCIN SULFATE
     Indication: Product used for unknown indication
     Dosage: 8 GRAM, PM,8 G, DISSOLVED IN THE GLASS OF WATER, ONCE IN THE EVENING (9 PM)
     Route: 065
     Dates: start: 20180524, end: 20180524
  47. FUROSEMIDE;RESERPINE [Concomitant]
     Indication: Product used for unknown indication
     Dosage: UNK
     Route: 065
  48. DIOVAN [Concomitant]
     Active Substance: VALSARTAN
     Indication: Product used for unknown indication
     Dosage: 80 MILLIGRAM, AM,80 MG, ONCE DAILY IN THE MORNING (1-0-0-0)
     Route: 065
     Dates: start: 20180502
  49. DIOVAN [Concomitant]
     Active Substance: VALSARTAN
     Dosage: 160 MILLIGRAM, QD,80 MG, BID
     Route: 065
  50. DIOVAN [Concomitant]
     Active Substance: VALSARTAN
     Dosage: 80 MILLIGRAM, QD,80 MG, QD
     Route: 065
  51. XANAFLU [Concomitant]
     Active Substance: INFLUENZA VIRUS VACCINE
     Indication: Influenza immunisation
     Dosage: UNK
     Route: 065
     Dates: start: 20171114, end: 20171114
  52. DORZOVISION [Concomitant]
     Indication: Product used for unknown indication
     Dosage: UNK UNK, BID
     Route: 065
  53. Riopan [Concomitant]
     Indication: Product used for unknown indication
     Dosage: UNK UNK, PRN,UNK, AS NEEDED
     Route: 065
  54. VOLTAREN [Concomitant]
     Active Substance: DICLOFENAC SODIUM
     Indication: Product used for unknown indication
     Dosage: UNK
     Route: 065
  55. Hepathrombin [Concomitant]
     Indication: Product used for unknown indication
     Dosage: UNK
     Route: 065
  56. BUTYLSCOPOLAMINE BROMIDE [Concomitant]
     Active Substance: BUTYLSCOPOLAMINE BROMIDE
     Indication: Product used for unknown indication
     Dosage: 1 DOSAGE FORM,1 DF
     Route: 065
  57. FORMOTEROL [Concomitant]
     Active Substance: FORMOTEROL
     Indication: Asthma
     Dosage: UNK
     Route: 065
  58. POTASSIUM IODIDE [Concomitant]
     Active Substance: POTASSIUM IODIDE
     Indication: Thyroid therapy
     Dosage: 200 MICROGRAM, AM,200 UG, ? IN THE MORNING (1/2-0-0-0)
     Route: 065
     Dates: start: 20180524
  59. FOSTER [Concomitant]
     Active Substance: BECLOMETHASONE\FORMOTEROL
     Indication: Asthma
     Dosage: UNK UNK, AM
     Route: 065
  60. FOSTER [Concomitant]
     Active Substance: BECLOMETHASONE\FORMOTEROL
     Dosage: UNK UNK, BID,2 PUFFS IN THE MORNING (8 AM), BID, PULMONAL
     Route: 065
     Dates: start: 20180526
  61. FOSTER [Concomitant]
     Active Substance: BECLOMETHASONE\FORMOTEROL
     Dosage: UNK UNK, AM,1 PUFF ,DAILY (MORNING), QD, PULMONAL
     Route: 065
     Dates: start: 20180502
  62. FOSTER [Concomitant]
     Active Substance: BECLOMETHASONE\FORMOTEROL
     Dosage: UNK UNK, PRN,UNK UNK, AM,PULMONAL, AS NEEDED
     Route: 065

REACTIONS (108)
  - Colon neoplasm [Unknown]
  - Dehydration [Unknown]
  - Mucosal haemorrhage [Unknown]
  - Change of bowel habit [Unknown]
  - Nephritis [Unknown]
  - Obstructive pancreatitis [Recovered/Resolved]
  - Jaundice cholestatic [Recovered/Resolved]
  - Nasopharyngitis [Recovered/Resolved]
  - Faeces discoloured [Unknown]
  - Colon cancer [Recovered/Resolved]
  - Abdominal pain upper [Unknown]
  - Adenocarcinoma [Recovered/Resolved]
  - General physical health deterioration [Unknown]
  - Vomiting [Unknown]
  - Nausea [Unknown]
  - Diarrhoea [Unknown]
  - Chromaturia [Unknown]
  - Exostosis [Recovering/Resolving]
  - Foot deformity [Unknown]
  - Large intestine polyp [Recovered/Resolved]
  - Macular degeneration [Unknown]
  - Asthenia [Unknown]
  - Cardiac failure [Unknown]
  - Gastritis erosive [Unknown]
  - Appendicitis [Unknown]
  - Respiratory tract infection [Unknown]
  - Sinus node dysfunction [Unknown]
  - Osteoarthritis [Unknown]
  - Gastric mucosa erythema [Unknown]
  - Myocardial ischaemia [Unknown]
  - Joint destruction [Unknown]
  - Arrhythmia [Unknown]
  - Pericarditis [Unknown]
  - Pyelonephritis [Recovering/Resolving]
  - Renal atrophy [Unknown]
  - Cauda equina syndrome [Unknown]
  - Angioedema [Unknown]
  - Sciatica [Unknown]
  - Blood creatinine increased [Unknown]
  - Flatulence [Unknown]
  - Haemorrhoidal haemorrhage [Unknown]
  - Eye pain [Unknown]
  - Dysplasia [Unknown]
  - Hypercholesterolaemia [Unknown]
  - Allergy to metals [Unknown]
  - Weight decreased [Unknown]
  - Peripheral swelling [Unknown]
  - Anal haemorrhage [Unknown]
  - Immobilisation syndrome [Unknown]
  - Dyschezia [Recovering/Resolving]
  - Swelling face [Unknown]
  - Dysphagia [Unknown]
  - Food intolerance [Unknown]
  - Hyposmia [Unknown]
  - Arthralgia [Unknown]
  - Chest discomfort [Unknown]
  - Haemorrhoids [Unknown]
  - Dyspepsia [Unknown]
  - Dyspnoea exertional [Unknown]
  - Night sweats [Unknown]
  - Lymphadenitis [Unknown]
  - Adverse drug reaction [Unknown]
  - Goitre [Unknown]
  - Joint effusion [Unknown]
  - Fall [Unknown]
  - Rash [Unknown]
  - Pain [Unknown]
  - Visual impairment [Unknown]
  - Muscle atrophy [Unknown]
  - Hyperuricaemia [Unknown]
  - Microangiopathy [Unknown]
  - Abdominal pain lower [Unknown]
  - Vulvovaginal inflammation [Unknown]
  - Spinal osteoarthritis [Unknown]
  - Sinusitis [Recovering/Resolving]
  - Tinnitus [Unknown]
  - Tendonitis [Unknown]
  - Thyroid disorder [Unknown]
  - Anaemia [Unknown]
  - Renal cyst [Unknown]
  - Spinal disorder [Unknown]
  - Iron deficiency anaemia [Unknown]
  - Cardiomegaly [Unknown]
  - Diverticulum intestinal [Unknown]
  - Oedema [Unknown]
  - Mobility decreased [Unknown]
  - Lymphoedema [Unknown]
  - Vaginal infection [Unknown]
  - Abdominal pain [Unknown]
  - Bowel movement irregularity [Unknown]
  - Hyperkinesia [Unknown]
  - Leukocytosis [Unknown]
  - Fluid retention [Unknown]
  - Colorectal adenoma [Unknown]
  - Raynaud^s phenomenon [Unknown]
  - Hiatus hernia [Unknown]
  - Anal skin tags [Unknown]
  - Thoracic outlet syndrome [Unknown]
  - Oropharyngeal pain [Unknown]
  - Oedema peripheral [Unknown]
  - Aortic dilatation [Unknown]
  - Aggression [Unknown]
  - Enthesopathy [Unknown]
  - Plantar fasciitis [Recovering/Resolving]
  - Cough [Unknown]
  - Urinary tract infection [Unknown]
  - Wheezing [Unknown]
  - Gamma-glutamyltransferase increased [Unknown]

NARRATIVE: CASE EVENT DATE: 20150101
